FAERS Safety Report 24248620 (Version 1)
Quarter: 2024Q3

REPORT INFORMATION
  Report Type: Spontaneous
  Country: US (occurrence: None)
  Receive Date: 20240823
  Receipt Date: 20240823
  Transmission Date: 20241017
  Serious: No
  Sender: Public
  Company Number: None

PATIENT
  Age: 73 Year
  Sex: Female

DRUGS (1)
  1. ADBRY [Suspect]
     Active Substance: TRALOKINUMAB-LDRM
     Indication: Gastrointestinal stromal tumour
     Dosage: ? INJECT 300MG (2 SYRINGES) SUBCUTANEOUSLY  EVERY 2 WEEKS  AS DIRECTED
     Route: 058
     Dates: start: 202307

REACTIONS (2)
  - Hospitalisation [None]
  - Therapy interrupted [None]
